FAERS Safety Report 4311180-0 (Version None)
Quarter: 2004Q1

REPORT INFORMATION
  Report Type: 
  Country: None (occurrence: None)
  Receive Date: 20040301
  Receipt Date: 20040115
  Transmission Date: 20041129
  Serious: No
  Sender: FDA-Public Use
  Company Number: WAES 0401USA01420

PATIENT
  Age: 47 Year
  Sex: Male
  Weight: 73.9363 kg

DRUGS (7)
  1. ZETIA [Suspect]
     Indication: DYSLIPIDAEMIA
     Dosage: 10 MG/ DAILY/ PO
     Route: 048
     Dates: start: 20030428, end: 20031130
  2. BUSPAR [Concomitant]
  3. PAXIL [Concomitant]
  4. PRILOSEC [Concomitant]
  5. TENORETIC [Concomitant]
  6. TRICOR [Concomitant]
  7. COLCHICINE [Concomitant]

REACTIONS (1)
  - HIGH DENSITY LIPOPROTEIN DECREASED [None]
